FAERS Safety Report 17484718 (Version 4)
Quarter: 2020Q2

REPORT INFORMATION
  Report Type: Report from Study
  Country: US (occurrence: US)
  Receive Date: 20200302
  Receipt Date: 20200429
  Transmission Date: 20200713
  Serious: Yes (Death, Hospitalization, Other)
  Sender: FDA-Public Use
  Company Number: US-ADAMAS PHARMA, LLC-2020ADA00478

PATIENT
  Age: 79 Year
  Sex: Male

DRUGS (4)
  1. GOCOVRI [Suspect]
     Active Substance: AMANTADINE
     Dosage: 274 MG, 1X/DAY AT BEDTIME
     Route: 048
     Dates: start: 20200131, end: 20200217
  2. UNSPECIFIED LEVODOPA-BASED THERAPY [Concomitant]
     Active Substance: LEVODOPA
  3. GOCOVRI [Suspect]
     Active Substance: AMANTADINE
     Indication: DYSKINESIA
     Dosage: 137 MG, 1X/DAY AT BEDTIME
     Route: 048
     Dates: start: 20200124, end: 20200130
  4. GOCOVRI [Suspect]
     Active Substance: AMANTADINE
     Dosage: 137 MG, 1X/DAY AT BEDTIME
     Route: 048
     Dates: start: 20200218, end: 20200304

REACTIONS (7)
  - Vision blurred [Unknown]
  - Acute myocardial infarction [Fatal]
  - Benign prostatic hyperplasia [Unknown]
  - Urinary retention [Unknown]
  - Prostatitis [Unknown]
  - Cystitis [Unknown]
  - Dizziness [Unknown]

NARRATIVE: CASE EVENT DATE: 20200130
